FAERS Safety Report 24593872 (Version 1)
Quarter: 2024Q4

REPORT INFORMATION
  Report Type: Spontaneous
  Country: US (occurrence: US)
  Receive Date: 20241108
  Receipt Date: 20241108
  Transmission Date: 20250115
  Serious: No
  Sender: EMD SERONO INC
  Company Number: US-Merck Healthcare KGaA-2024057938

PATIENT

DRUGS (2)
  1. MAVENCLAD [Suspect]
     Active Substance: CLADRIBINE
     Indication: Multiple sclerosis
     Dosage: FIRST YEAR FIRST MONTH THERAPY
  2. MAVENCLAD [Suspect]
     Active Substance: CLADRIBINE
     Dosage: FIRST YEAR SECOND MONTH THERAPY AT A DOSE OF TWO TABLETS ON DAYS 1 AND 2 AND 1 TABLET ON DAYS 3 TO 5
     Dates: start: 20240414, end: 20240418

REACTIONS (2)
  - White blood cell count decreased [Unknown]
  - Vitamin B12 decreased [Unknown]
